FAERS Safety Report 20306356 (Version 2)
Quarter: 2022Q1

REPORT INFORMATION
  Report Type: Spontaneous
  Country: CN (occurrence: CN)
  Receive Date: 20220106
  Receipt Date: 20220121
  Transmission Date: 20220424
  Serious: Yes (Other)
  Sender: FDA-Public Use
  Company Number: CN-SA-SAC20220101000193

PATIENT
  Age: 55 Year
  Sex: Female
  Weight: 60 kg

DRUGS (4)
  1. OXALIPLATIN [Suspect]
     Active Substance: OXALIPLATIN
     Indication: Rectal cancer
     Dosage: 120 MG, TOTAL
     Route: 041
     Dates: start: 20211009, end: 20211009
  2. FLUOROURACIL [Suspect]
     Active Substance: FLUOROURACIL
     Indication: Rectal cancer
     Dosage: 3.5 G, TOTAL
     Route: 041
     Dates: start: 20211009, end: 20211009
  3. SODIUM CHLORIDE [Concomitant]
     Active Substance: SODIUM CHLORIDE
     Dosage: 100 ML, TOTAL
     Route: 041
     Dates: start: 20211009, end: 20211009
  4. DEXTROSE [Concomitant]
     Active Substance: DEXTROSE
     Dosage: 500 ML, TOTAL
     Route: 041
     Dates: start: 20211009, end: 20211009

REACTIONS (2)
  - White blood cell count decreased [Recovering/Resolving]
  - Neutrophil count decreased [Recovering/Resolving]

NARRATIVE: CASE EVENT DATE: 20211026
